FAERS Safety Report 18502516 (Version 1)
Quarter: 2020Q4

REPORT INFORMATION
  Report Type: Spontaneous
  Country: IE (occurrence: IE)
  Receive Date: 20201113
  Receipt Date: 20201113
  Transmission Date: 20210114
  Serious: Yes (Hospitalization, Other)
  Sender: FDA-Public Use
  Company Number: IE-VIIV HEALTHCARE LIMITED-IE2020GSK221895

PATIENT
  Age: 39 Year
  Sex: Female

DRUGS (2)
  1. DOLUTEGRAVIR [Suspect]
     Active Substance: DOLUTEGRAVIR
     Indication: HIV INFECTION
     Dosage: UNK
  2. EMTRICITABINE + TENOFOVIR ALAFENAMIDE [Suspect]
     Active Substance: EMTRICITABINE\TENOFOVIR ALAFENAMIDE FUMARATE
     Indication: HIV INFECTION
     Dosage: UNK

REACTIONS (13)
  - Reflexes abnormal [Recovered/Resolved]
  - Seizure [Recovered/Resolved]
  - Encephalitis [Unknown]
  - Depressed level of consciousness [Recovered/Resolved]
  - CSF HIV virus identified [Recovered/Resolved]
  - General physical health deterioration [Recovered/Resolved]
  - Drug resistance [Unknown]
  - Condition aggravated [Unknown]
  - Hyporeflexia [Recovered/Resolved]
  - Viral mutation identified [Unknown]
  - Epstein-Barr virus test positive [Recovered/Resolved]
  - Pathogen resistance [Unknown]
  - Electroencephalogram abnormal [Recovered/Resolved]
